FAERS Safety Report 22952113 (Version 2)
Quarter: 2024Q1

REPORT INFORMATION
  Report Type: Report from Study
  Country: CA (occurrence: CA)
  Receive Date: 20230918
  Receipt Date: 20240201
  Transmission Date: 20240410
  Serious: Yes (Hospitalization)
  Sender: FDA-Public Use
  Company Number: CA-JNJFOC-20220949581

PATIENT
  Age: 62 Year
  Sex: Male
  Weight: 61 kg

DRUGS (1)
  1. REMICADE [Suspect]
     Active Substance: INFLIXIMAB
     Indication: Crohn^s disease
     Dosage: THE PATIENT HAD REINDUCTION DOSE ON 25-JAN-2023?BATCH NUMBER: 23B167 EXPIRY NUMBER: APR/2026
     Route: 041
     Dates: start: 20180716

REACTIONS (4)
  - Liver disorder [Recovered/Resolved]
  - Hospitalisation [Unknown]
  - Jaundice [Unknown]
  - Product dose omission issue [Unknown]

NARRATIVE: CASE EVENT DATE: 20221013
